FAERS Safety Report 22173364 (Version 1)
Quarter: 2023Q2

REPORT INFORMATION
  Report Type: Spontaneous
  Country: JP (occurrence: JP)
  Receive Date: 20230404
  Receipt Date: 20230404
  Transmission Date: 20230722
  Serious: Yes (Death, Hospitalization)
  Sender: FDA-Public Use
  Company Number: JP-TEVA-2023-JP-2873428

PATIENT
  Age: 30 Year
  Sex: Female

DRUGS (20)
  1. CARBOPLATIN [Suspect]
     Active Substance: CARBOPLATIN
     Indication: Breast angiosarcoma
     Dosage: FIRST INFUSION, 30 MG
     Route: 041
  2. CARBOPLATIN [Suspect]
     Active Substance: CARBOPLATIN
     Indication: Metastases to liver
  3. PACLITAXEL [Suspect]
     Active Substance: PACLITAXEL
     Indication: Breast angiosarcoma
     Dosage: WEEKLY FOR 12 CYCLES, 75 MG/M2
     Route: 042
  4. PACLITAXEL [Suspect]
     Active Substance: PACLITAXEL
     Indication: Metastases to liver
  5. DOXORUBICIN [Suspect]
     Active Substance: DOXORUBICIN
     Indication: Breast angiosarcoma
     Dosage: 60 MG/M2
     Route: 065
  6. DOXORUBICIN [Suspect]
     Active Substance: DOXORUBICIN
     Indication: Metastases to liver
  7. FLUOROURACIL [Suspect]
     Active Substance: FLUOROURACIL
     Indication: Breast angiosarcoma
     Dosage: FIRST INFUSION, 250 MG
     Route: 041
  8. FLUOROURACIL [Suspect]
     Active Substance: FLUOROURACIL
     Indication: Metastases to liver
     Dosage: SECOND AND THIRD INFUSIONS, 250 MG
     Route: 041
  9. ADRIAMYCIN [Suspect]
     Active Substance: DOXORUBICIN HYDROCHLORIDE
     Indication: Breast angiosarcoma
     Dosage: FIRST INFUSION, 20 MG
     Route: 041
  10. ADRIAMYCIN [Suspect]
     Active Substance: DOXORUBICIN HYDROCHLORIDE
     Indication: Metastases to liver
  11. EPIRUBICIN [Suspect]
     Active Substance: EPIRUBICIN
     Indication: Breast angiosarcoma
     Dosage: SECOND AND THIRD INFUSIONS, 20 MG
     Route: 041
  12. EPIRUBICIN [Suspect]
     Active Substance: EPIRUBICIN
     Indication: Metastases to liver
  13. DOCETAXEL [Suspect]
     Active Substance: DOCETAXEL
     Indication: Breast angiosarcoma
     Dosage: SECOND AND THIRD INFUSIONS, 20 MG
     Route: 041
  14. DOCETAXEL [Suspect]
     Active Substance: DOCETAXEL
     Indication: Metastases to liver
  15. CISPLATIN [Suspect]
     Active Substance: CISPLATIN
     Indication: Breast angiosarcoma
     Dosage: SECOND AND THIRD INFUSIONS, 20 MG
     Route: 041
  16. CISPLATIN [Suspect]
     Active Substance: CISPLATIN
     Indication: Metastases to liver
  17. ERIBULIN [Suspect]
     Active Substance: ERIBULIN
     Indication: Breast angiosarcoma
     Dosage: SECOND AND THIRD INFUSIONS, 1 MG/M2
     Route: 042
  18. ERIBULIN [Suspect]
     Active Substance: ERIBULIN
     Indication: Metastases to liver
  19. BEVACIZUMAB [Suspect]
     Active Substance: BEVACIZUMAB
     Indication: Breast angiosarcoma
     Dosage: FIRST INFUSION, 100 MG
     Route: 041
  20. BEVACIZUMAB [Suspect]
     Active Substance: BEVACIZUMAB
     Indication: Metastases to liver
     Dosage: SECOND AND THIRD INFUSIONS, 200 MG
     Route: 041

REACTIONS (1)
  - Drug ineffective [Fatal]
